FAERS Safety Report 8996765 (Version 1)
Quarter: 2012Q4

REPORT INFORMATION
  Report Type: Spontaneous
  Country: US (occurrence: None)
  Receive Date: 20121228
  Receipt Date: 20121228
  Transmission Date: 20130627
  Serious: Yes (Hospitalization, Disabling)
  Sender: FDA-Public Use
  Company Number: None

PATIENT
  Age: 84 Year
  Sex: Male
  Weight: 68.04 kg

DRUGS (4)
  1. VIGAMOX [Suspect]
     Indication: CATARACT OPERATION
     Dosage: 1-DROP
     Dates: start: 20100826
  2. VIGAMOX [Suspect]
     Indication: CATARACT OPERATION
     Dosage: 1-DROP
     Dates: start: 20100826
  3. VIGAMOX [Suspect]
     Indication: CATARACT OPERATION
     Dosage: 1-DROP
     Dates: start: 20101006
  4. VIGAMOX [Suspect]
     Indication: CATARACT OPERATION
     Dosage: 1-DROP
     Dates: start: 20101006

REACTIONS (5)
  - Mastication disorder [None]
  - Weight decreased [None]
  - Asthenia [None]
  - Walking aid user [None]
  - Gait disturbance [None]
